FAERS Safety Report 20447598 (Version 2)
Quarter: 2022Q2

REPORT INFORMATION
  Report Type: Spontaneous
  Country: JP (occurrence: JP)
  Receive Date: 20220209
  Receipt Date: 20220609
  Transmission Date: 20220721
  Serious: Yes (Other)
  Sender: FDA-Public Use
  Company Number: JP-UNITED THERAPEUTICS-UNT-2022-002898

PATIENT
  Age: 24 Month
  Sex: Male

DRUGS (4)
  1. UNITUXIN [Suspect]
     Active Substance: DINUTUXIMAB
     Indication: Neuroblastoma
     Dosage: UNK, CYCLICAL (CYCLE 1)
     Route: 041
     Dates: start: 20220124, end: 20220127
  2. MORPHINE HYDROCHLORIDE [Suspect]
     Active Substance: MORPHINE HYDROCHLORIDE
     Indication: Abdominal pain
     Dosage: UNK
     Route: 065
  3. FILGRASTIM [Suspect]
     Active Substance: FILGRASTIM
     Indication: Neuroblastoma
     Dosage: UNK, (CYCLE 1)
     Route: 065
     Dates: start: 20220121
  4. FILGRASTIM [Suspect]
     Active Substance: FILGRASTIM
     Dosage: UNK  (CYCLE 5)
     Route: 065
     Dates: start: 20220527

REACTIONS (13)
  - Myelosuppression [Not Recovered/Not Resolved]
  - Capillary leak syndrome [Recovered/Resolved]
  - Urinary retention [Recovered/Resolved]
  - C-reactive protein increased [Recovered/Resolved]
  - Oedema [Recovered/Resolved]
  - Pyrexia [Recovered/Resolved]
  - Abdominal pain [Recovered/Resolved]
  - Aspartate aminotransferase increased [Recovered/Resolved]
  - Alanine aminotransferase increased [Recovered/Resolved]
  - Weight increased [Unknown]
  - Blood albumin decreased [Unknown]
  - Platelet count decreased [Unknown]
  - Pyrexia [Unknown]

NARRATIVE: CASE EVENT DATE: 20220101
